FAERS Safety Report 11067675 (Version 1)
Quarter: 2015Q2

REPORT INFORMATION
  Report Type: Spontaneous
  Country: DE (occurrence: DE)
  Receive Date: 20150427
  Receipt Date: 20150427
  Transmission Date: 20150821
  Serious: Yes (Hospitalization)
  Sender: FDA-Public Use
  Company Number: DE-ASTRAZENECA-2015SE36835

PATIENT
  Age: 40 Year
  Sex: Female

DRUGS (27)
  1. SAROTEN RETARD [Suspect]
     Active Substance: AMITRIPTYLINE
     Route: 048
     Dates: start: 20100204, end: 20100221
  2. CIPRAMIL [Concomitant]
     Active Substance: CITALOPRAM HYDROBROMIDE
     Route: 048
     Dates: start: 20100125, end: 20100130
  3. SIMVAHEXAL [Concomitant]
     Active Substance: SIMVASTATIN
     Route: 048
     Dates: start: 20100316, end: 20100414
  4. SEROQUEL [Suspect]
     Active Substance: QUETIAPINE FUMARATE
     Route: 048
     Dates: start: 20100322, end: 20100330
  5. SAROTEN RETARD [Suspect]
     Active Substance: AMITRIPTYLINE
     Route: 048
     Dates: start: 20100222
  6. SIMVAHEXAL [Concomitant]
     Active Substance: SIMVASTATIN
     Route: 048
     Dates: start: 20100415
  7. TOREM [Concomitant]
     Active Substance: TORSEMIDE
     Dosage: AS REQUIRED
     Route: 048
     Dates: start: 20100304, end: 20100312
  8. SEROQUEL [Suspect]
     Active Substance: QUETIAPINE FUMARATE
     Route: 048
     Dates: start: 20091111, end: 20100119
  9. SEROQUEL [Suspect]
     Active Substance: QUETIAPINE FUMARATE
     Route: 048
     Dates: start: 20100209
  10. SEROQUEL [Suspect]
     Active Substance: QUETIAPINE FUMARATE
     Route: 048
     Dates: start: 20100331
  11. ABILIFY [Concomitant]
     Active Substance: ARIPIPRAZOLE
     Route: 048
     Dates: start: 20091030, end: 20091228
  12. TOREM [Concomitant]
     Active Substance: TORSEMIDE
     Route: 048
     Dates: start: 20100413, end: 20100415
  13. SEROQUEL [Suspect]
     Active Substance: QUETIAPINE FUMARATE
     Route: 048
     Dates: start: 20100321
  14. ESIDRIX [Concomitant]
     Active Substance: HYDROCHLOROTHIAZIDE
     Dosage: 50/25 MG, 1 DF EVERY MORNING
     Route: 048
     Dates: start: 20100225
  15. SEROQUEL [Suspect]
     Active Substance: QUETIAPINE FUMARATE
     Route: 048
     Dates: start: 20100120, end: 20100125
  16. ESIDRIX [Concomitant]
     Active Substance: HYDROCHLOROTHIAZIDE
     Route: 048
  17. TOREM [Concomitant]
     Active Substance: TORSEMIDE
     Route: 048
     Dates: start: 20100416
  18. SEROQUEL [Suspect]
     Active Substance: QUETIAPINE FUMARATE
     Route: 048
     Dates: start: 20100202, end: 20100208
  19. ABILIFY [Concomitant]
     Active Substance: ARIPIPRAZOLE
     Route: 048
     Dates: start: 20091020, end: 20091026
  20. SEROQUEL [Suspect]
     Active Substance: QUETIAPINE FUMARATE
     Route: 048
     Dates: start: 20100201, end: 20100201
  21. SEROQUEL [Suspect]
     Active Substance: QUETIAPINE FUMARATE
     Route: 048
     Dates: start: 20100210, end: 20100318
  22. SEROQUEL [Suspect]
     Active Substance: QUETIAPINE FUMARATE
     Route: 048
     Dates: start: 20100319, end: 20100320
  23. ABILIFY [Concomitant]
     Active Substance: ARIPIPRAZOLE
     Route: 048
     Dates: start: 20100120, end: 20100124
  24. TAVOR [Concomitant]
     Active Substance: LORAZEPAM
     Route: 048
     Dates: start: 20091012
  25. SEROQUEL [Suspect]
     Active Substance: QUETIAPINE FUMARATE
     Dosage: 50-300 MG, UNKNOWN FREQUENCY
     Route: 048
     Dates: start: 20091105, end: 20091111
  26. SEROQUEL [Suspect]
     Active Substance: QUETIAPINE FUMARATE
     Route: 048
     Dates: start: 20100126, end: 20100131
  27. ABILIFY [Concomitant]
     Active Substance: ARIPIPRAZOLE
     Route: 048
     Dates: start: 20091229, end: 20100119

REACTIONS (2)
  - Weight increased [Unknown]
  - Oedema [Unknown]

NARRATIVE: CASE EVENT DATE: 20100223
